FAERS Safety Report 16357312 (Version 1)
Quarter: 2019Q2

REPORT INFORMATION
  Report Type: Report from Study
  Country: US (occurrence: US)
  Receive Date: 20190527
  Receipt Date: 20190527
  Transmission Date: 20190711
  Serious: Yes (Death, Other)
  Sender: FDA-Public Use
  Company Number: US-ROCHE-2324447

PATIENT
  Age: 40 Year
  Sex: Male
  Weight: 99.5 kg

DRUGS (29)
  1. SINGULAIR [Concomitant]
     Active Substance: MONTELUKAST SODIUM
  2. SIMETHICONE (DIMETHICONE) [Concomitant]
     Active Substance: DIMETHICONE
  3. ACTIGALL [Concomitant]
     Active Substance: URSODIOL
  4. VINCRISTINE [Concomitant]
     Active Substance: VINCRISTINE
     Route: 042
  5. RITUXIMAB. [Suspect]
     Active Substance: RITUXIMAB
     Indication: ACUTE LYMPHOCYTIC LEUKAEMIA
     Dosage: LAST ADMINISTRATION DATE WAS 05/DEC/2018.
     Route: 042
     Dates: start: 20181005, end: 20181205
  6. LASIX [Concomitant]
     Active Substance: FUROSEMIDE
  7. CELLCEPT [Concomitant]
     Active Substance: MYCOPHENOLATE MOFETIL\MYCOPHENOLATE MOFETIL HYDROCHLORIDE
  8. ALDACTONE [Concomitant]
     Active Substance: SPIRONOLACTONE
  9. VANTIN [CEFPODOXIME PROXETIL] [Concomitant]
  10. PERIDEX [CHLORHEXIDINE GLUCONATE] [Concomitant]
  11. VALTREX [Concomitant]
     Active Substance: VALACYCLOVIR HYDROCHLORIDE
  12. PALIFERMIN [Suspect]
     Active Substance: PALIFERMIN
     Indication: SURGICAL PRECONDITIONING
     Route: 065
  13. ETOPOSIDE. [Suspect]
     Active Substance: ETOPOSIDE
     Indication: SURGICAL PRECONDITIONING
     Route: 065
  14. VFEND [Concomitant]
     Active Substance: VORICONAZOLE
  15. PROGRAF [Concomitant]
     Active Substance: TACROLIMUS\TACROLIMUS ANHYDROUS
  16. CANCIDAS [Concomitant]
     Active Substance: CASPOFUNGIN ACETATE
  17. BENTYL [Concomitant]
     Active Substance: DICYCLOMINE HYDROCHLORIDE
  18. ATIVAN [Concomitant]
     Active Substance: LORAZEPAM
  19. LOPRESSOR [Concomitant]
     Active Substance: METOPROLOL TARTRATE
  20. MIRALAX [Concomitant]
     Active Substance: POLYETHYLENE GLYCOL 3350
  21. PROTONIX [Concomitant]
     Active Substance: PANTOPRAZOLE SODIUM
  22. DELTASONE [PREDNISONE] [Concomitant]
  23. DEXAMETHASONE. [Concomitant]
     Active Substance: DEXAMETHASONE
     Route: 042
  24. INOTUZUMAB OZOGAMICIN [Suspect]
     Active Substance: INOTUZUMAB OZOGAMICIN
     Indication: ACUTE LYMPHOCYTIC LEUKAEMIA
     Dosage: LAST ADMINISTRATION DATE WAS 05/DEC/2018.
     Route: 042
     Dates: start: 20181006, end: 20181205
  25. ZYRTEC [Concomitant]
     Active Substance: CETIRIZINE HYDROCHLORIDE
  26. PREVIDENT [Concomitant]
     Active Substance: SODIUM FLUORIDE
  27. LETERMOVIR [Concomitant]
     Active Substance: LETERMOVIR
  28. IMODIUM [Concomitant]
     Active Substance: LOPERAMIDE HYDROCHLORIDE
  29. PROCHLORPERAZINE. [Concomitant]
     Active Substance: PROCHLORPERAZINE

REACTIONS (1)
  - Venoocclusive liver disease [Not Recovered/Not Resolved]

NARRATIVE: CASE EVENT DATE: 20190315
